FAERS Safety Report 6413570-9 (Version None)
Quarter: 2009Q4

REPORT INFORMATION
  Report Type: 
  Country: None (occurrence: None)
  Receive Date: 20091026
  Receipt Date: 20091013
  Transmission Date: 20100525
  Serious: Yes (Hospitalization)
  Sender: FDA-Public Use
  Company Number: BR-ABBOTT-09P-020-0602851-00

PATIENT
  Sex: Female

DRUGS (14)
  1. HUMIRA [Suspect]
     Indication: RHEUMATOID ARTHRITIS
     Route: 058
     Dates: start: 20090201, end: 20090601
  2. CYMBALTA [Concomitant]
     Indication: DEPRESSION
     Route: 048
     Dates: start: 20080801
  3. SERTRALINE HCL [Concomitant]
     Indication: DEPRESSION
     Route: 048
     Dates: start: 20080801
  4. ALPRAZOLAM [Concomitant]
     Indication: DEPRESSION
     Route: 048
     Dates: start: 20080801
  5. GABAPENTIN [Concomitant]
     Indication: PROPHYLAXIS
     Route: 048
     Dates: start: 20080801
  6. NUCLEO C.M.P. [Concomitant]
     Indication: PROPHYLAXIS
     Route: 048
     Dates: start: 20080801
  7. CITONEURIN [Concomitant]
     Indication: SEDATIVE THERAPY
     Route: 048
     Dates: start: 20080801
  8. TRAMADOL HYDROCHLORIDE [Concomitant]
     Indication: PAIN
     Route: 048
     Dates: start: 20080801
  9. TRAMADOL HYDROCHLORIDE [Concomitant]
     Indication: TENSION
  10. BACLOFEN [Concomitant]
     Indication: PAIN
     Route: 048
     Dates: start: 20080801
  11. BACLOFEN [Concomitant]
     Indication: TENSION
  12. HYGROTON [Concomitant]
     Indication: BLADDER DISORDER
     Route: 048
     Dates: start: 20090801
  13. OMEPRAZOLE [Concomitant]
     Indication: GASTRIC DISORDER
     Route: 048
  14. ISOCONAZOLE [Concomitant]
     Indication: FUNGAL INFECTION

REACTIONS (5)
  - FUNGAL SKIN INFECTION [None]
  - HAEMATOMA [None]
  - NECROSIS [None]
  - STAPHYLOCOCCAL SKIN INFECTION [None]
  - UTERINE LEIOMYOMA [None]
